FAERS Safety Report 21471147 (Version 1)
Quarter: 2022Q4

REPORT INFORMATION
  Report Type: Spontaneous
  Country: US (occurrence: US)
  Receive Date: 20221018
  Receipt Date: 20221018
  Transmission Date: 20230113
  Serious: No
  Sender: FDA-Public Use
  Company Number: US-BAYER-2022A143314

PATIENT
  Age: 57 Year
  Sex: Male

DRUGS (1)
  1. CLARITIN [Suspect]
     Active Substance: LORATADINE
     Indication: Cold urticaria
     Dosage: UNK
     Route: 048
     Dates: start: 202209, end: 20221017

REACTIONS (1)
  - Drug ineffective [Unknown]
